FAERS Safety Report 23630198 (Version 2)
Quarter: 2024Q2

REPORT INFORMATION
  Report Type: Spontaneous
  Country: UY (occurrence: UY)
  Receive Date: 20240314
  Receipt Date: 20240430
  Transmission Date: 20240716
  Serious: No
  Sender: FDA-Public Use
  Company Number: UY-TOLMAR, INC.-24UY047176

PATIENT
  Sex: Male

DRUGS (2)
  1. ELIGARD [Suspect]
     Active Substance: LEUPROLIDE ACETATE
     Indication: Product used for unknown indication
     Dosage: 7.5 MILLIGRAM
     Route: 058
     Dates: start: 20240219
  2. LEUPROLIDE ACETATE [Suspect]
     Active Substance: ISOPROPYL ALCOHOL\LEUPROLIDE ACETATE
     Indication: Product used for unknown indication
     Dosage: UNK

REACTIONS (3)
  - Intercepted product administration error [Unknown]
  - Syringe issue [Unknown]
  - Product reconstitution quality issue [Unknown]

NARRATIVE: CASE EVENT DATE: 20240219
